FAERS Safety Report 5701025-6 (Version None)
Quarter: 2008Q2

REPORT INFORMATION
  Report Type: 
  Country: None (occurrence: None)
  Receive Date: 20080410
  Receipt Date: 20080408
  Transmission Date: 20081010
  Serious: Yes (Other)
  Sender: FDA-Public Use
  Company Number: DE-WYE-G01366908

PATIENT
  Sex: Female
  Weight: 60 kg

DRUGS (1)
  1. TREVILOR RETARD [Suspect]
     Dosage: 30 CAPSULES (OVERDOSE AMOUNT 2250 MG)
     Route: 048
     Dates: start: 20080403, end: 20080403

REACTIONS (5)
  - ERYTHEMA [None]
  - HERPES SIMPLEX [None]
  - INTENTIONAL OVERDOSE [None]
  - PYREXIA [None]
  - SUICIDE ATTEMPT [None]
